FAERS Safety Report 14560550 (Version 1)
Quarter: 2018Q1

REPORT INFORMATION
  Report Type: Spontaneous
  Country: US (occurrence: US)
  Receive Date: 20180222
  Receipt Date: 20180222
  Transmission Date: 20180509
  Serious: Yes (Hospitalization)
  Sender: FDA-Public Use
  Company Number: US-BEH-2018087980

PATIENT
  Sex: Female
  Weight: 43.54 kg

DRUGS (25)
  1. HIZENTRA [Suspect]
     Active Substance: HUMAN IMMUNOGLOBULIN G
     Indication: HYPOGAMMAGLOBULINAEMIA
     Dosage: UNK
     Route: 058
  2. DIPHENHYDRAMINE. [Concomitant]
     Active Substance: DIPHENHYDRAMINE
  3. NASONEX [Concomitant]
     Active Substance: MOMETASONE FUROATE
  4. VITAMIN E                          /00110501/ [Concomitant]
     Active Substance: TOCOPHEROL
  5. EPINEPHRINE. [Concomitant]
     Active Substance: EPINEPHRINE
  6. CLORAZEPATE [Concomitant]
     Active Substance: CLORAZEPATE DIPOTASSIUM
  7. ALBUMIN HUMAN [Concomitant]
     Active Substance: ALBUMIN HUMAN
  8. KEPPRA [Concomitant]
     Active Substance: LEVETIRACETAM
  9. VITAMIN K [Concomitant]
     Active Substance: PHYTONADIONE
  10. HIZENTRA [Suspect]
     Active Substance: HUMAN IMMUNOGLOBULIN G
     Dosage: 7 G, QW
     Route: 058
     Dates: start: 20170802
  11. HIZENTRA [Suspect]
     Active Substance: HUMAN IMMUNOGLOBULIN G
     Dosage: UNK
     Route: 058
  12. CLONAZEPAM. [Concomitant]
     Active Substance: CLONAZEPAM
  13. SPIRONOLACTONE W/HYDROCHLOROTHIAZIDE [Concomitant]
     Active Substance: HYDROCHLOROTHIAZIDE\SPIRONOLACTONE
  14. HIZENTRA [Suspect]
     Active Substance: HUMAN IMMUNOGLOBULIN G
     Dosage: UNK
     Route: 058
  15. INTRALIPID [Concomitant]
     Active Substance: EGG PHOSPHOLIPIDS\GLYCERIN\SOYBEAN OIL
  16. AMITRIPTYLINE [Concomitant]
     Active Substance: AMITRIPTYLINE
  17. LEVOTHYROXINE. [Concomitant]
     Active Substance: LEVOTHYROXINE
  18. RISPERDAL [Concomitant]
     Active Substance: RISPERIDONE
  19. VITAMIN D3 [Concomitant]
     Active Substance: CHOLECALCIFEROL
  20. CANNABIDIOL [Concomitant]
     Active Substance: CANNABIDIOL
  21. GUANFACINE. [Concomitant]
     Active Substance: GUANFACINE
  22. ONFI [Concomitant]
     Active Substance: CLOBAZAM
  23. LIDOCAINE. [Concomitant]
     Active Substance: LIDOCAINE
  24. FUROSEMIDE. [Concomitant]
     Active Substance: FUROSEMIDE
  25. OXCARBAZEPINE. [Concomitant]
     Active Substance: OXCARBAZEPINE

REACTIONS (1)
  - Fall [Unknown]
